FAERS Safety Report 4524697-0 (Version None)
Quarter: 2004Q4

REPORT INFORMATION
  Report Type: 
  Country: None (occurrence: None)
  Receive Date: 20041211
  Receipt Date: 20041028
  Transmission Date: 20050328
  Serious: Yes (Life-Threatening, Hospitalization, Disabling)
  Sender: FDA-Public Use
  Company Number: US-MERCK-0410USA04251

PATIENT
  Age: 35 Year
  Sex: Female
  Weight: 114 kg

DRUGS (4)
  1. VIOXX [Suspect]
     Indication: METATARSALGIA
     Route: 048
     Dates: start: 20030801, end: 20040101
  2. VIOXX [Suspect]
     Route: 048
     Dates: start: 20010815, end: 20010801
  3. VIOXX [Suspect]
     Indication: EXOSTOSIS
     Route: 048
     Dates: start: 20030801, end: 20040101
  4. VIOXX [Suspect]
     Route: 048
     Dates: start: 20010815, end: 20010801

REACTIONS (3)
  - CARDIAC DISORDER [None]
  - CHEST PAIN [None]
  - DYSPNOEA [None]
